FAERS Safety Report 16475657 (Version 4)
Quarter: 2019Q3

REPORT INFORMATION
  Report Type: Spontaneous
  Country: SE (occurrence: SE)
  Receive Date: 20190625
  Receipt Date: 20190905
  Transmission Date: 20191004
  Serious: Yes (Life-Threatening, Hospitalization, Other)
  Sender: FDA-Public Use
  Company Number: SE-UCBSA-2019025928

PATIENT
  Age: 72 Year
  Sex: Female

DRUGS (6)
  1. VIMPAT [Suspect]
     Active Substance: LACOSAMIDE
     Indication: OFF LABEL USE
  2. ATROPINE. [Concomitant]
     Active Substance: ATROPINE
     Indication: BRADYCARDIA
     Dosage: UNKNOWN DOSE
  3. LAMOTRIGINE. [Concomitant]
     Active Substance: LAMOTRIGINE
     Indication: SEIZURE
     Dosage: UNKNOWN DOSE
  4. NORADRENALINE [NOREPINEPHRINE] [Concomitant]
     Active Substance: NOREPINEPHRINE
     Indication: BRADYCARDIA
     Dosage: LOW DOSE
  5. VIMPAT [Suspect]
     Active Substance: LACOSAMIDE
     Indication: SUICIDE ATTEMPT
     Dosage: 5.6 GRAM, RECEIVED OVERDOSE
     Route: 048
  6. VIMPAT [Suspect]
     Active Substance: LACOSAMIDE
     Indication: SEIZURE

REACTIONS (12)
  - Status epilepticus [Recovering/Resolving]
  - Bradycardia [Recovered/Resolved]
  - Cardiac arrest [Recovering/Resolving]
  - Electrocardiogram QRS complex prolonged [Recovering/Resolving]
  - Sinus arrest [Recovered/Resolved]
  - Overdose [Unknown]
  - Off label use [Unknown]
  - Ventricular tachycardia [Recovering/Resolving]
  - Mydriasis [Recovering/Resolving]
  - Loss of consciousness [Recovered/Resolved]
  - Hyperventilation [Recovering/Resolving]
  - Suicide attempt [Recovered/Resolved]
